FAERS Safety Report 22371373 (Version 1)
Quarter: 2023Q2

REPORT INFORMATION
  Report Type: Spontaneous
  Country: US (occurrence: US)
  Receive Date: 20230526
  Receipt Date: 20230526
  Transmission Date: 20230722
  Serious: Yes (Hospitalization, Other)
  Sender: FDA-Public Use
  Company Number: US-009507513-2305USA007204

PATIENT
  Sex: Female
  Weight: 40.816 kg

DRUGS (11)
  1. KEYTRUDA [Suspect]
     Active Substance: PEMBROLIZUMAB
     Indication: Renal cancer
  2. LENVATINIB MESYLATE [Suspect]
     Active Substance: LENVATINIB MESYLATE
     Indication: Renal cancer
     Dosage: 10 MILLIGRAM, DAILY
     Route: 048
     Dates: start: 202212
  3. ALPRAZOLAM [Concomitant]
     Active Substance: ALPRAZOLAM
  4. COREG CR [Concomitant]
     Active Substance: CARVEDILOL PHOSPHATE
  5. DOCUSATE SODIUM [Concomitant]
     Active Substance: DOCUSATE SODIUM
  6. LEVOTHYROXINE [Concomitant]
     Active Substance: LEVOTHYROXINE
  7. NITROGLYCERIN [Concomitant]
     Active Substance: NITROGLYCERIN
  8. NYSTATIN [Concomitant]
     Active Substance: NYSTATIN
  9. OXYCODONE [Concomitant]
     Active Substance: OXYCODONE
  10. XGEVA [Concomitant]
     Active Substance: DENOSUMAB
  11. XTAMPZA ER [Concomitant]
     Active Substance: OXYCODONE

REACTIONS (8)
  - Dehydration [Recovering/Resolving]
  - Chemotherapy [Unknown]
  - Abdominal discomfort [Recovering/Resolving]
  - Feeding disorder [Recovering/Resolving]
  - Thyroid disorder [Recovering/Resolving]
  - Pruritus [Recovering/Resolving]
  - Nausea [Recovering/Resolving]
  - Product use issue [Unknown]
